FAERS Safety Report 4393207-3 (Version None)
Quarter: 2004Q3

REPORT INFORMATION
  Report Type: 
  Country: None (occurrence: None)
  Receive Date: 20040701
  Receipt Date: 20040618
  Transmission Date: 20050211
  Serious: Yes (Life-Threatening)
  Sender: FDA-Public Use
  Company Number: GB-JNJFOC-20040604702

PATIENT
  Age: 50 Year
  Sex: Female

DRUGS (15)
  1. REMICADE [Suspect]
     Indication: RHEUMATOID ARTHRITIS
     Dosage: STRENGTH 10.0 MG/L
  2. METHOTREXATE [Suspect]
     Indication: RHEUMATOID ARTHRITIS
  3. RITUXIMAB (RITUXIMAB) [Suspect]
     Indication: RHEUMATOID ARTHRITIS
  4. ANAKINRA (ANAKINRA) [Suspect]
     Indication: RHEUMATOID ARTHRITIS
  5. PREDNISOLONE [Concomitant]
  6. MORPHINE [Concomitant]
  7. PENICILLAMINE [Concomitant]
  8. AZATHIOPRINE [Concomitant]
  9. CYCLOPHOSPHAMIDE [Concomitant]
  10. CYCLOSPORINE [Concomitant]
  11. IMMUNE GLOBULIN INTRAVENOUS (HUMAN) [Concomitant]
  12. HYDROXYCHLOROQUINE SULFATE [Concomitant]
  13. ILOPROST (ILOPROST) [Concomitant]
  14. LEFLUNOMIDE [Concomitant]
  15. METHYLPREDNISOLONE [Concomitant]

REACTIONS (3)
  - DRUG INTERACTION [None]
  - OVARIAN CANCER METASTATIC [None]
  - PLEURAL EFFUSION [None]
